FAERS Safety Report 16131092 (Version 9)
Quarter: 2020Q4

REPORT INFORMATION
  Report Type: Report from Study
  Country: US (occurrence: US)
  Receive Date: 20190328
  Receipt Date: 20201103
  Transmission Date: 20210113
  Serious: Yes (Death, Life-Threatening, Other)
  Sender: FDA-Public Use
  Company Number: PHHY2018US201265

PATIENT
  Age: 10 Year
  Sex: Male

DRUGS (4)
  1. FLUDARABINE [Concomitant]
     Active Substance: FLUDARABINE PHOSPHATE
     Indication: CHEMOTHERAPY
     Route: 065
  2. KYMRIAH [Suspect]
     Active Substance: TISAGENLECLEUCEL
     Indication: ACUTE LYMPHOCYTIC LEUKAEMIA
  3. CYCLOPHOSPHAMIDE. [Concomitant]
     Active Substance: CYCLOPHOSPHAMIDE
     Indication: CHEMOTHERAPY
     Route: 065
  4. KYMRIAH [Suspect]
     Active Substance: TISAGENLECLEUCEL
     Indication: B-CELL TYPE ACUTE LEUKAEMIA
     Dosage: UNK
     Route: 042
     Dates: start: 20180503

REACTIONS (28)
  - Influenza [Unknown]
  - Rhinovirus infection [Unknown]
  - Respirovirus test positive [Unknown]
  - Rubulavirus test positive [Unknown]
  - Viral upper respiratory tract infection [Unknown]
  - Pulmonary toxicity [Unknown]
  - Acute lymphocytic leukaemia recurrent [Fatal]
  - Aneurysmal bone cyst [Unknown]
  - Pyrexia [Recovered/Resolved]
  - Lymphocyte count decreased [Unknown]
  - Haemoglobin decreased [Unknown]
  - Cytopenia [Unknown]
  - Enterovirus infection [Unknown]
  - Viral sinusitis [Unknown]
  - Hypoxia [Recovered/Resolved]
  - Platelet count decreased [Recovered/Resolved]
  - White blood cell count decreased [Unknown]
  - Neutrophil count decreased [Recovered/Resolved]
  - Pseudomonas infection [Unknown]
  - Pulmonary hypertension [Unknown]
  - Pneumonia [Unknown]
  - Stenotrophomonas infection [Unknown]
  - Staphylococcal infection [Unknown]
  - Hypogammaglobulinaemia [Unknown]
  - Cytokine release syndrome [Recovered/Resolved]
  - Thrombocytopenia [Recovered/Resolved]
  - Haematocrit decreased [Unknown]
  - Streptococcus test positive [Unknown]
